FAERS Safety Report 5917692-8 (Version None)
Quarter: 2008Q4

REPORT INFORMATION
  Report Type: 
  Country: None (occurrence: None)
  Receive Date: 20081009
  Receipt Date: 20081003
  Transmission Date: 20090506
  Serious: Yes (Hospitalization)
  Sender: FDA-Public Use
  Company Number: 2008AL010975

PATIENT
  Age: 84 Year
  Sex: Male
  Weight: 90.7194 kg

DRUGS (1)
  1. DIGOXIN [Suspect]
     Indication: CARDIAC FAILURE CONGESTIVE
     Dosage: 0.125MG, PO
     Route: 048

REACTIONS (5)
  - CATHETERISATION CARDIAC [None]
  - DIZZINESS [None]
  - LABORATORY TEST ABNORMAL [None]
  - LOSS OF CONSCIOUSNESS [None]
  - SYNCOPE [None]
